FAERS Safety Report 6383872-3 (Version None)
Quarter: 2009Q4

REPORT INFORMATION
  Report Type: 
  Country: None (occurrence: None)
  Receive Date: 20091001
  Receipt Date: 20090824
  Transmission Date: 20100525
  Serious: No
  Sender: FDA-Public Use
  Company Number: US-BAYER-200913824BCC

PATIENT
  Age: 73 Year
  Sex: Male
  Weight: 98 kg

DRUGS (11)
  1. ALEVE (CAPLET) [Suspect]
     Indication: PAIN IN EXTREMITY
     Dosage: UNIT DOSE: 220 MG
     Route: 048
     Dates: start: 20090824
  2. METFORMIN HYDROCHLORIDE [Concomitant]
     Route: 065
  3. JANUVIA [Concomitant]
     Route: 065
  4. VERAPAMIL [Concomitant]
     Dosage: UNIT DOSE: 120 MG
     Route: 065
  5. ASPIRIN [Concomitant]
     Route: 065
  6. DIOVAN [Concomitant]
     Route: 065
  7. ALLOPURINOL [Concomitant]
     Route: 065
  8. CRESTOR [Concomitant]
     Route: 065
  9. LASIX [Concomitant]
     Route: 065
  10. ZETIA [Concomitant]
     Route: 065
  11. ADVAIR DISKUS 100/50 [Concomitant]
     Dosage: USE TWO PUFFS A DAY
     Route: 065

REACTIONS (2)
  - DYSPEPSIA [None]
  - HICCUPS [None]
